FAERS Safety Report 12821955 (Version 1)
Quarter: 2016Q4

REPORT INFORMATION
  Report Type: Spontaneous
  Country: FR (occurrence: FR)
  Receive Date: 20161007
  Receipt Date: 20161007
  Transmission Date: 20170207
  Serious: Yes (Other)
  Sender: FDA-Public Use
  Company Number: FR-ASTRAZENECA-2016SF05211

PATIENT
  Age: 546 Month
  Sex: Male

DRUGS (9)
  1. SPIRIVA [Concomitant]
     Active Substance: TIOTROPIUM BROMIDE MONOHYDRATE
  2. AERIUS [Concomitant]
     Active Substance: DESLORATADINE
  3. BYDUREON [Suspect]
     Active Substance: EXENATIDE
     Indication: TYPE 2 DIABETES MELLITUS
     Route: 058
     Dates: start: 201601, end: 201601
  4. FENOFIBRATE. [Concomitant]
     Active Substance: FENOFIBRATE
  5. ESOMEPRAZOLE [Concomitant]
     Active Substance: ESOMEPRAZOLE
  6. DIAMICRON [Concomitant]
     Active Substance: GLICLAZIDE
  7. GLUCOPHAGE [Concomitant]
     Active Substance: METFORMIN HYDROCHLORIDE
  8. FORADIL [Concomitant]
     Active Substance: FORMOTEROL FUMARATE
  9. KARDEGIC [Concomitant]
     Active Substance: ASPIRIN LYSINE

REACTIONS (5)
  - Myalgia [Recovered/Resolved]
  - Vertigo [Recovered/Resolved]
  - Arthralgia [Recovered/Resolved]
  - Asthenia [Recovered/Resolved]
  - Nausea [Recovered/Resolved]

NARRATIVE: CASE EVENT DATE: 201601
